FAERS Safety Report 7308508-6 (Version None)
Quarter: 2011Q1

REPORT INFORMATION
  Report Type: 
  Country: None (occurrence: None)
  Receive Date: 20110210
  Receipt Date: 20110128
  Transmission Date: 20110831
  Serious: Yes (Life-Threatening, Hospitalization)
  Sender: FDA-Public Use
  Company Number: 2011000446

PATIENT
  Age: 72 Year
  Sex: Female
  Weight: 55.3388 kg

DRUGS (3)
  1. LOVASTATIN (LOVASTAIN) [Concomitant]
  2. PAZOPANIB/PLACEBO [Suspect]
     Indication: LUNG NEOPLASM MALIGNANT
     Dosage: (600 MG,DAILY),ORAL
     Route: 048
     Dates: start: 20101226
  3. ERLOTINIB (ERLOTINIB) (TABLET) (ERLOTINIB) [Suspect]
     Indication: LUNG NEOPLASM MALIGNANT
     Dosage: (150 MG,DAILY),ORAL
     Route: 048
     Dates: start: 20101216

REACTIONS (1)
  - ANAEMIA [None]
